FAERS Safety Report 24378844 (Version 1)
Quarter: 2024Q3

REPORT INFORMATION
  Report Type: Spontaneous
  Country: CA (occurrence: CA)
  Receive Date: 20240930
  Receipt Date: 20240930
  Transmission Date: 20241016
  Serious: Yes (Death, Other)
  Sender: LEO PHARM
  Company Number: None

PATIENT
  Age: 63 Year
  Sex: Male

DRUGS (2)
  1. TACROLIMUS [Suspect]
     Active Substance: TACROLIMUS
     Indication: Immunosuppressant drug therapy
     Dosage: DOSE FREQUENCY THERAPY DURATION: ASKED BUT UNKNOWN
  2. MYCOPHENOLATE MOFETIL [Suspect]
     Active Substance: MYCOPHENOLATE MOFETIL
     Indication: Immunosuppressant drug therapy
     Dosage: DOSE, FREQUENCY, THERAPY DURATION: ASKED BUT UNKNOWN

REACTIONS (3)
  - Respiratory failure [Fatal]
  - Metastases to lung [Fatal]
  - Angiosarcoma [Fatal]
